FAERS Safety Report 7724296-3 (Version None)
Quarter: 2011Q3

REPORT INFORMATION
  Report Type: 
  Country: None (occurrence: None)
  Receive Date: 20110829
  Receipt Date: 20110818
  Transmission Date: 20111222
  Serious: Yes (Other)
  Sender: FDA-Public Use
  Company Number: 2010JP000070

PATIENT
  Age: 36 Year
  Sex: Female
  Weight: 46.7 kg

DRUGS (6)
  1. PREDNISOLONE [Suspect]
     Indication: LUPUS NEPHRITIS
     Dosage: 20 MG, D, ORAL
     Route: 048
  2. FAMOTIDINE [Concomitant]
  3. BONALON (ALENDRONATE SODIUM) [Concomitant]
  4. TACROLIMUS [Suspect]
     Indication: LUPUS NEPHRITIS
     Dosage: 3 MG, D, ORAL
     Route: 048
     Dates: start: 20070608
  5. ASPIRIN [Concomitant]
  6. BONALON (ALENDRONATE SODIUIM) [Concomitant]

REACTIONS (6)
  - NASOPHARYNGITIS [None]
  - SINUSITIS [None]
  - COMMUNITY ACQUIRED INFECTION [None]
  - OVARIAN FAILURE [None]
  - METRORRHAGIA [None]
  - PAIN [None]
